FAERS Safety Report 10227524 (Version 1)
Quarter: 2014Q2

REPORT INFORMATION
  Report Type: Spontaneous
  Country: US (occurrence: None)
  Receive Date: 20140609
  Receipt Date: 20140609
  Transmission Date: 20141212
  Serious: Yes (Death, Hospitalization)
  Sender: FDA-Public Use
  Company Number: None

PATIENT
  Age: 58 Year
  Sex: Female
  Weight: 109.5 kg

DRUGS (2)
  1. CYTARABINE [Suspect]
     Dates: end: 20140513
  2. DAUNORUBICIN [Suspect]
     Dates: end: 20140509

REACTIONS (17)
  - Neutrophil count decreased [None]
  - Transfusion reaction [None]
  - Hypoxia [None]
  - Fluid overload [None]
  - Melaena [None]
  - Haemoglobin decreased [None]
  - Gastrointestinal haemorrhage [None]
  - Atrial fibrillation [None]
  - Anaemia [None]
  - Pulmonary oedema [None]
  - No therapeutic response [None]
  - Blood pressure decreased [None]
  - Neutropenic sepsis [None]
  - Enterococcal infection [None]
  - Sinus tachycardia [None]
  - Atrial flutter [None]
  - Renal failure acute [None]
